FAERS Safety Report 14532054 (Version 1)
Quarter: 2018Q1

REPORT INFORMATION
  Report Type: Spontaneous
  Country: US (occurrence: US)
  Receive Date: 20180214
  Receipt Date: 20180214
  Transmission Date: 20180509
  Serious: Yes (Hospitalization, Other)
  Sender: FDA-Public Use
  Company Number: US-MYLANLABS-2018M1009815

PATIENT
  Age: 72 Year
  Sex: Female

DRUGS (3)
  1. CYTARABINE. [Suspect]
     Active Substance: CYTARABINE
     Indication: ACUTE MYELOID LEUKAEMIA RECURRENT
     Dosage: 100 MG/ME2 (170 MG)
     Route: 065
  2. CYTARABINE. [Suspect]
     Active Substance: CYTARABINE
     Dosage: HIGH-DOSE CYTARABINE (HIDAC) THERAPY; 1566 MG/ME2 (2600 MG)
     Route: 065
  3. IDARUBICIN [Concomitant]
     Active Substance: IDARUBICIN
     Indication: ACUTE MYELOID LEUKAEMIA RECURRENT
     Dosage: 12 MG/ME2 (20MG)
     Route: 065

REACTIONS (3)
  - Drug-induced liver injury [Unknown]
  - Respiratory failure [Unknown]
  - Mental status changes [Unknown]
